FAERS Safety Report 6719272-3 (Version None)
Quarter: 2010Q2

REPORT INFORMATION
  Report Type: 
  Country: None (occurrence: None)
  Receive Date: 20100507
  Receipt Date: 20100422
  Transmission Date: 20101027
  Serious: Yes (Life-Threatening, Hospitalization)
  Sender: FDA-Public Use
  Company Number: AMAG201000217

PATIENT
  Age: 71 Year
  Sex: Female
  Weight: 118.4 kg

DRUGS (16)
  1. FERAHEME [Suspect]
     Indication: IRON DEFICIENCY ANAEMIA
     Dosage: 510 MG, SINGLE, INTRAVENOUS
     Route: 042
     Dates: start: 20100422, end: 20100422
  2. COUMADIN [Concomitant]
  3. TEKTURNA [Concomitant]
  4. CRESTOR [Concomitant]
  5. BENICAR [Concomitant]
  6. ALLEGRA [Concomitant]
  7. TRAMADOL HCL [Concomitant]
  8. POTASSIUM (POTASSIUM GLUCONATE) [Concomitant]
  9. PANTOPRAZOLE SODIUM [Concomitant]
  10. COLCHICINE (COLCHICINE) [Concomitant]
  11. ISOSORBIDE (ISOSORBIDE) [Concomitant]
  12. IRON (IRON) [Concomitant]
  13. HUMULIN N [Concomitant]
  14. LASIX [Concomitant]
  15. VITAMIN D [Concomitant]
  16. PROCRIT [Concomitant]

REACTIONS (8)
  - CARDIO-RESPIRATORY ARREST [None]
  - DIZZINESS [None]
  - FALL [None]
  - NAUSEA [None]
  - SNORING [None]
  - TACHYCARDIA [None]
  - URINARY INCONTINENCE [None]
  - VOMITING [None]
